FAERS Safety Report 24011210 (Version 1)
Quarter: 2024Q2

REPORT INFORMATION
  Report Type: Spontaneous
  Country: US (occurrence: None)
  Receive Date: 20240625
  Receipt Date: 20240625
  Transmission Date: 20240715
  Serious: Yes (Other)
  Sender: FDA-Public Use
  Company Number: None

PATIENT
  Age: 71 Year
  Sex: Female
  Weight: 59.5 kg

DRUGS (1)
  1. PACLITAXEL [Suspect]
     Active Substance: PACLITAXEL
     Indication: Lung neoplasm malignant

REACTIONS (9)
  - Cough [None]
  - Dyspnoea [None]
  - Pulse abnormal [None]
  - Therapy cessation [None]
  - Musculoskeletal disorder [None]
  - Tremor [None]
  - Blood pressure increased [None]
  - Hyperhidrosis [None]
  - Unresponsive to stimuli [None]

NARRATIVE: CASE EVENT DATE: 20240624
